FAERS Safety Report 8492189-2 (Version None)
Quarter: 2012Q3

REPORT INFORMATION
  Report Type: 
  Country: None (occurrence: None)
  Receive Date: 20120706
  Receipt Date: 20120703
  Transmission Date: 20120928
  Serious: No
  Sender: FDA-Public Use
  Company Number: US-PFIZER INC-2012159671

PATIENT
  Sex: Female
  Weight: 77.1 kg

DRUGS (2)
  1. CELEBREX [Suspect]
     Indication: ARTHRITIS
     Dosage: 200 MG, 1X/DAY
     Route: 048
     Dates: start: 19980101
  2. NORVASC [Concomitant]
     Indication: HYPERTENSION
     Dosage: 5 MG

REACTIONS (2)
  - NAUSEA [None]
  - INCORRECT DOSE ADMINISTERED [None]
